FAERS Safety Report 25213489 (Version 1)
Quarter: 2025Q2

REPORT INFORMATION
  Report Type: Spontaneous
  Country: US (occurrence: None)
  Receive Date: 20250417
  Receipt Date: 20250417
  Transmission Date: 20250717
  Serious: Yes (Other)
  Sender: FDA-CTU
  Company Number: None

PATIENT
  Age: 69 Year
  Sex: Male
  Weight: 90.72 kg

DRUGS (1)
  1. CABOMETYX [Suspect]
     Active Substance: CABOZANTINIB S-MALATE
     Indication: Renal cancer
     Dosage: 40 MG DAILY ORAL
     Route: 048
     Dates: start: 20250321

REACTIONS (2)
  - Diarrhoea [None]
  - Fatigue [None]
